FAERS Safety Report 4371789-5 (Version None)
Quarter: 2004Q2

REPORT INFORMATION
  Report Type: 
  Country: None (occurrence: None)
  Receive Date: 20040604
  Receipt Date: 20040604
  Transmission Date: 20050107
  Serious: Yes (Life-Threatening)
  Sender: FDA-Public Use
  Company Number: None

PATIENT
  Age: 75 Year
  Sex: Male
  Weight: 57 kg

DRUGS (2)
  1. HURRICAINE SPRAY 20 % BEAUTICH [Suspect]
     Indication: BRONCHOSCOPY
     Dosage: ENDOTRACHEAL
     Route: 007
     Dates: start: 20040525, end: 20040525
  2. METHYLENE BLUE [Concomitant]

REACTIONS (1)
  - ACQUIRED METHAEMOGLOBINAEMIA [None]
